FAERS Safety Report 6877956-0 (Version None)
Quarter: 2010Q3

REPORT INFORMATION
  Report Type: 
  Country: None (occurrence: None)
  Receive Date: 20100727
  Receipt Date: 20100720
  Transmission Date: 20110219
  Serious: Yes (Life-Threatening)
  Sender: FDA-Public Use
  Company Number: US-ELI_LILLY_AND_COMPANY-US201007004975

PATIENT
  Age: 35 Year
  Sex: Female

DRUGS (2)
  1. HUMALOG [Suspect]
     Indication: GESTATIONAL DIABETES
  2. HUMULIN N [Suspect]
     Indication: GESTATIONAL DIABETES

REACTIONS (2)
  - ANAPHYLACTIC REACTION [None]
  - DRUG EXPOSURE DURING PREGNANCY [None]
